FAERS Safety Report 7262230-3 (Version None)
Quarter: 2011Q1

REPORT INFORMATION
  Report Type: 
  Country: None (occurrence: None)
  Receive Date: 20110130
  Receipt Date: 20101124
  Transmission Date: 20110831
  Serious: No
  Sender: FDA-Public Use
  Company Number: US-ABBOTT-10P-163-0687646-00

PATIENT
  Age: 22 Year
  Sex: Female

DRUGS (8)
  1. VSL [Concomitant]
     Indication: CROHN'S DISEASE
     Dosage: 3 DAILY
  2. RELPAX [Concomitant]
     Indication: MIGRAINE
     Dosage: AS NEEDED
  3. PENTASA [Concomitant]
     Indication: CROHN'S DISEASE
  4. DICYCLOMINE [Concomitant]
     Indication: CROHN'S DISEASE
  5. LEXAPRO [Concomitant]
     Indication: DEPRESSION
  6. HUMIRA [Suspect]
     Indication: CROHN'S DISEASE
     Dosage: TOOK 4 INJECTIONS 1ST TIME
     Dates: start: 20101021, end: 20101021
  7. BC [Concomitant]
     Indication: PRODUCT USED FOR UNKNOWN INDICATION
  8. ENTOCORT EC [Concomitant]
     Indication: CROHN'S DISEASE

REACTIONS (3)
  - GENERALISED OEDEMA [None]
  - PRURITUS GENERALISED [None]
  - NAUSEA [None]
